FAERS Safety Report 5480131-8 (Version None)
Quarter: 2007Q4

REPORT INFORMATION
  Report Type: 
  Country: None (occurrence: None)
  Receive Date: 20071009
  Receipt Date: 20071001
  Transmission Date: 20080405
  Serious: Yes (Other)
  Sender: FDA-Public Use
  Company Number: PHRM2007FR02294

PATIENT
  Age: 75 Year
  Sex: Male

DRUGS (1)
  1. DESFERAL [Suspect]
     Indication: IRON OVERLOAD
     Dosage: UNK, UNK
     Dates: start: 19990331

REACTIONS (3)
  - NEPHROLITHIASIS [None]
  - RENAL COLIC [None]
  - RENAL STONE REMOVAL [None]
